FAERS Safety Report 4709900-6 (Version None)
Quarter: 2005Q3

REPORT INFORMATION
  Report Type: 
  Country: None (occurrence: None)
  Receive Date: 20050708
  Receipt Date: 20050627
  Transmission Date: 20060218
  Serious: Yes (Hospitalization)
  Sender: FDA-Public Use
  Company Number: FR-BRISTOL-MYERS SQUIBB COMPANY-13017728

PATIENT
  Age: 41 Year
  Sex: Male

DRUGS (3)
  1. VIDEX [Suspect]
     Route: 048
  2. VIREAD [Suspect]
  3. VIRAMUNE [Concomitant]

REACTIONS (3)
  - DIABETES MELLITUS [None]
  - FANCONI SYNDROME [None]
  - RENAL FAILURE ACUTE [None]
